FAERS Safety Report 19229819 (Version 4)
Quarter: 2021Q3

REPORT INFORMATION
  Report Type: Spontaneous
  Country: JP (occurrence: JP)
  Receive Date: 20210506
  Receipt Date: 20210707
  Transmission Date: 20211014
  Serious: Yes (Hospitalization, Other)
  Sender: FDA-Public Use
  Company Number: NVSJ2021JP006675

PATIENT

DRUGS (1)
  1. GILENYA [Suspect]
     Active Substance: FINGOLIMOD HYDROCHLORIDE
     Indication: MULTIPLE SCLEROSIS
     Dosage: 0.5 MG,WAS NOT RECEIVED DAILY
     Route: 048
     Dates: end: 202106

REACTIONS (5)
  - Lymphocyte count decreased [Recovering/Resolving]
  - JC polyomavirus test positive [Unknown]
  - Gait disturbance [Recovering/Resolving]
  - Inappropriate schedule of product administration [Unknown]
  - Multiple sclerosis relapse [Unknown]

NARRATIVE: CASE EVENT DATE: 202104
